FAERS Safety Report 7803127-7 (Version None)
Quarter: 2011Q4

REPORT INFORMATION
  Report Type: 
  Country: None (occurrence: None)
  Receive Date: 20111007
  Receipt Date: 20110926
  Transmission Date: 20120403
  Serious: Yes (Hospitalization)
  Sender: FDA-Public Use
  Company Number: PHHY2011VE86401

PATIENT
  Sex: Female

DRUGS (8)
  1. ZOLEDRONOC ACID [Suspect]
     Dosage: 5 MG, YEARLY
     Route: 042
     Dates: start: 20100716
  2. LERCADIP [Concomitant]
     Indication: HYPERTENSION
     Dosage: 10 MG
     Route: 048
     Dates: start: 20110101
  3. LOSARTAN POTASSIUM [Concomitant]
     Indication: HYPERTENSION
     Dosage: 100 MG
     Route: 048
     Dates: start: 20110101
  4. SPIRONOLACTONE [Concomitant]
     Indication: COLLATERAL CIRCULATION
     Dosage: 25 MG
     Route: 048
     Dates: start: 20110401
  5. CORENTEL [Concomitant]
     Indication: HYPERTENSION
     Dosage: 5 MG
     Route: 048
     Dates: start: 20110101
  6. ZOLEDRONOC ACID [Suspect]
     Indication: OSTEOPOROSIS
     Dosage: 5 MG, YEARLY
     Route: 042
     Dates: start: 20090101
  7. CLOPIDOGREL [Concomitant]
     Dosage: 75 MG, UNK
     Route: 048
     Dates: start: 20110101
  8. PROTELOS (STRONTIUM RANELATE) [Concomitant]
     Dosage: 2 G, GRANULATED ONE MONTH

REACTIONS (5)
  - FALL [None]
  - HYPERTENSIVE CRISIS [None]
  - FOOT FRACTURE [None]
  - HYPERTENSION [None]
  - FEMUR FRACTURE [None]
